FAERS Safety Report 6529012-9 (Version None)
Quarter: 2009Q4

REPORT INFORMATION
  Report Type: 
  Country: None (occurrence: None)
  Receive Date: 20091229
  Receipt Date: 20091222
  Transmission Date: 20100525
  Serious: Yes (Other)
  Sender: FDA-Public Use
  Company Number: PL-EBEWE-1983MTX09

PATIENT
  Age: 52 Year
  Sex: Female
  Weight: 58 kg

DRUGS (2)
  1. METHOTREXATE [Suspect]
     Indication: RHEUMATOID ARTHRITIS
     Dosage: 10 MG/WEEK ORAL
     Route: 048
     Dates: start: 20030501, end: 20031001
  2. METYPRED [Concomitant]

REACTIONS (4)
  - ALANINE AMINOTRANSFERASE INCREASED [None]
  - FEELING ABNORMAL [None]
  - IMPAIRED HEALING [None]
  - NAUSEA [None]
